FAERS Safety Report 10676965 (Version 1)
Quarter: 2014Q4

REPORT INFORMATION
  Report Type: Spontaneous
  Country: US (occurrence: US)
  Receive Date: 20141226
  Receipt Date: 20141226
  Transmission Date: 20150529
  Serious: Yes (Hospitalization)
  Sender: FDA-Public Use
  Company Number: US-PFIZER INC-2014352303

PATIENT
  Age: 36 Year
  Sex: Female
  Weight: 77.98 kg

DRUGS (2)
  1. LYRICA [Suspect]
     Active Substance: PREGABALIN
     Indication: NYSTAGMUS
     Dosage: UNK
     Dates: start: 2007
  2. LYRICA [Suspect]
     Active Substance: PREGABALIN
     Dosage: 150, 3X/DAY

REACTIONS (1)
  - Intestinal obstruction [Unknown]
